FAERS Safety Report 10215158 (Version 1)
Quarter: 2014Q2

REPORT INFORMATION
  Report Type: Spontaneous
  Country: US (occurrence: US)
  Receive Date: 20140603
  Receipt Date: 20140603
  Transmission Date: 20141212
  Serious: Yes (Other)
  Sender: FDA-Public Use
  Company Number: PHHY2014US063552

PATIENT
  Age: 92 Year
  Sex: Male

DRUGS (1)
  1. HEPARIN [Suspect]
     Indication: THROMBOSIS PROPHYLAXIS

REACTIONS (8)
  - Adrenal mass [Unknown]
  - Adrenal haemorrhage [Unknown]
  - Adrenal insufficiency [Unknown]
  - Hyponatraemia [Unknown]
  - Haematocrit decreased [Unknown]
  - Blood osmolarity decreased [Unknown]
  - Deep vein thrombosis [Unknown]
  - Thrombocytopenia [Unknown]
